FAERS Safety Report 7835495-4 (Version None)
Quarter: 2011Q4

REPORT INFORMATION
  Report Type: 
  Country: None (occurrence: None)
  Receive Date: 20111024
  Receipt Date: 20111017
  Transmission Date: 20120403
  Serious: Yes (Other)
  Sender: FDA-Public Use
  Company Number: JP-BAYER-2011-021005

PATIENT
  Age: 32 Year
  Sex: Male
  Weight: 78 kg

DRUGS (15)
  1. SORAFENIB (RAF KINASE INHIBITOR) [Suspect]
     Indication: HEPATIC NEOPLASM MALIGNANT
     Dosage: DAILY DOSE 400 MG
     Route: 048
     Dates: start: 20100929, end: 20101214
  2. SORAFENIB (RAF KINASE INHIBITOR) [Suspect]
     Dosage: 800 MG, QD
     Route: 048
  3. BARACLUDE [Concomitant]
     Dosage: DAILY DOSE .5 MG
     Route: 048
  4. UREPEARL [Concomitant]
     Dosage: UNK
     Route: 061
     Dates: start: 20100927
  5. RABEPRAZOLE SODIUM [Concomitant]
     Dosage: DAILY DOSE 10 MG
     Route: 048
  6. MAGNESIUM SULFATE [Concomitant]
     Dosage: DAILY DOSE 990 MG
     Route: 048
  7. LIVACT [Concomitant]
     Dosage: DAILY DOSE 12.45 G
     Route: 048
  8. ALDACTONE [Concomitant]
     Dosage: DAILY DOSE 25 MG
     Route: 048
  9. MIYA BM [Concomitant]
     Dosage: DAILY DOSE 3 DF
     Route: 048
  10. LASIX [Concomitant]
     Dosage: DAILY DOSE 80 MG
     Route: 048
  11. SORAFENIB (RAF KINASE INHIBITOR) [Suspect]
     Dosage: DAILY DOSE 600 MG
     Route: 048
     Dates: start: 20101227
  12. SORAFENIB (RAF KINASE INHIBITOR) [Suspect]
     Dosage: 600 MG, QD
     Route: 048
     Dates: start: 20110101
  13. SORAFENIB (RAF KINASE INHIBITOR) [Suspect]
     Dosage: DAILY DOSE 400 MG
     Route: 048
     Dates: start: 20101220, end: 20101226
  14. LOXOPROFEN [Concomitant]
     Dosage: DAILY DOSE 120 MG
     Route: 048
  15. MIRIPLATIN [Concomitant]
     Indication: REGIONAL CHEMOTHERAPY
     Dosage: UNK
     Route: 013
     Dates: start: 20101216, end: 20101216

REACTIONS (1)
  - PANCYTOPENIA [None]
